FAERS Safety Report 24155422 (Version 3)
Quarter: 2024Q4

REPORT INFORMATION
  Report Type: Report from Study
  Country: US (occurrence: US)
  Receive Date: 20240731
  Receipt Date: 20241022
  Transmission Date: 20250115
  Serious: Yes (Hospitalization, Other)
  Sender: TAKEDA
  Company Number: US-TAKEDA-2024TUS068554

PATIENT
  Age: 44 Year
  Sex: Male
  Weight: 87.4 kg

DRUGS (15)
  1. BORTEZOMIB [Suspect]
     Active Substance: BORTEZOMIB
     Indication: Amyloidosis
     Dosage: 2.8 MILLIGRAM, 1/WEEK
     Route: 058
     Dates: start: 20240410, end: 20240614
  2. BIRTAMIMAB [Suspect]
     Active Substance: BIRTAMIMAB
     Indication: Primary amyloidosis
     Dosage: 2184 MILLIGRAM, Q4WEEKS
     Route: 065
     Dates: start: 20240410, end: 20240410
  3. BIRTAMIMAB [Suspect]
     Active Substance: BIRTAMIMAB
     Dosage: UNK
     Route: 065
     Dates: start: 20240614, end: 20240614
  4. BIRTAMIMAB [Suspect]
     Active Substance: BIRTAMIMAB
     Dosage: UNK
     Route: 065
     Dates: start: 20240606, end: 20240606
  5. CYCLOPHOSPHAMIDE [Suspect]
     Active Substance: CYCLOPHOSPHAMIDE
     Indication: Primary amyloidosis
     Dosage: UNK
     Route: 065
     Dates: start: 20240410, end: 20240614
  6. DARATUMUMAB [Suspect]
     Active Substance: DARATUMUMAB
     Indication: Primary amyloidosis
     Dosage: UNK
     Route: 065
     Dates: start: 20240410, end: 20240614
  7. ACYCLOVIR SODIUM [Concomitant]
     Active Substance: ACYCLOVIR SODIUM
     Dosage: UNK
     Route: 065
     Dates: start: 20240606
  8. APIXABAN [Concomitant]
     Active Substance: APIXABAN
     Dosage: UNK
     Route: 065
     Dates: start: 20240709
  9. BACLOFEN [Concomitant]
     Active Substance: BACLOFEN
     Dosage: UNK
     Route: 065
     Dates: start: 20240627
  10. ASPIRIN [Concomitant]
     Active Substance: ASPIRIN
     Dosage: UNK
     Route: 065
  11. CHOLECALCIFEROL [Concomitant]
     Active Substance: CHOLECALCIFEROL
     Dosage: UNK
     Route: 065
     Dates: start: 20240704, end: 20240803
  12. CYANOCOBALAMIN [Concomitant]
     Active Substance: CYANOCOBALAMIN
     Dosage: UNK
     Route: 065
  13. GABAPENTIN [Concomitant]
     Active Substance: GABAPENTIN
     Dosage: UNK
     Route: 065
     Dates: start: 20240627
  14. MIDODRINE [Concomitant]
     Active Substance: MIDODRINE
     Dosage: UNK
     Route: 065
     Dates: start: 20240703, end: 20240802
  15. RIMEGEPANT [Concomitant]
     Active Substance: RIMEGEPANT
     Dosage: UNK
     Route: 065
     Dates: start: 20240627, end: 20240722

REACTIONS (3)
  - Polyuria [Not Recovered/Not Resolved]
  - Cardiac failure [Recovered/Resolved]
  - Sepsis [Recovered/Resolved]

NARRATIVE: CASE EVENT DATE: 20240629
